FAERS Safety Report 8695262 (Version 2)
Quarter: 2013Q4

REPORT INFORMATION
  Report Type: Spontaneous
  Country: JP (occurrence: JP)
  Receive Date: 20120731
  Receipt Date: 20131107
  Transmission Date: 20140711
  Serious: Yes (Other)
  Sender: FDA-Public Use
  Company Number: JP-009507513-1207JPN010270

PATIENT
  Age: 52 Year
  Sex: Female

DRUGS (9)
  1. PEGINTRON [Suspect]
     Indication: HEPATITIS C
     Route: 058
     Dates: start: 20120410, end: 20120717
  2. REBETOL [Suspect]
     Indication: HEPATITIS C
     Route: 048
     Dates: start: 20120410, end: 20120723
  3. AMLODIN OD [Concomitant]
     Indication: HYPERTENSION
     Route: 048
     Dates: start: 201201
  4. GLACTIV [Concomitant]
     Route: 048
     Dates: start: 201201
  5. URSO [Concomitant]
     Route: 048
     Dates: start: 201202
  6. ALDOMET (METHYLDOPA) [Concomitant]
     Route: 048
     Dates: start: 201203
  7. LOXONIN [Concomitant]
     Route: 048
     Dates: start: 201203
  8. MUCOSTA [Concomitant]
     Route: 048
     Dates: start: 201203
  9. GASTER D [Concomitant]
     Route: 048
     Dates: start: 201203

REACTIONS (1)
  - Alanine aminotransferase increased [Not Recovered/Not Resolved]
